FAERS Safety Report 17462597 (Version 2)
Quarter: 2020Q1

REPORT INFORMATION
  Report Type: Report from Study
  Country: CO (occurrence: CO)
  Receive Date: 20200226
  Receipt Date: 20200304
  Transmission Date: 20200409
  Serious: Yes (Hospitalization, Other)
  Sender: FDA-Public Use
  Company Number: CO-BRISTOL-MYERS SQUIBB COMPANY-BMS-2020-002704

PATIENT
  Age: 55 Year
  Sex: Female

DRUGS (2)
  1. NIVOLUMAB [Suspect]
     Active Substance: NIVOLUMAB
     Indication: RENAL CANCER
     Dosage: 340 MILLIGRAM, Q3WK
     Route: 042
     Dates: start: 20190219, end: 20200108
  2. YERVOY [Suspect]
     Active Substance: IPILIMUMAB
     Indication: RENAL CANCER
     Dosage: 113 MILLIGRAM
     Route: 042
     Dates: start: 20191219, end: 20200108

REACTIONS (3)
  - Drug ineffective [Recovered/Resolved]
  - Haemorrhage [Recovering/Resolving]
  - Fluid retention [Recovered/Resolved]

NARRATIVE: CASE EVENT DATE: 20200102
